FAERS Safety Report 6531855-2 (Version None)
Quarter: 2010Q1

REPORT INFORMATION
  Report Type: 
  Country: None (occurrence: None)
  Receive Date: 20100108
  Receipt Date: 20091230
  Transmission Date: 20100710
  Serious: Yes (Hospitalization, Other)
  Sender: FDA-Public Use
  Company Number: US-JNJFOC-20091006757

PATIENT
  Sex: Female
  Weight: 89.36 kg

DRUGS (15)
  1. RISPERDAL CONSTA [Suspect]
     Indication: MENTAL DISORDER
     Route: 030
  2. RISPERDAL [Concomitant]
     Indication: MENTAL DISORDER
     Route: 048
  3. RISPERDAL [Concomitant]
     Route: 048
  4. RISPERDAL [Concomitant]
     Route: 048
  5. METFORMIN [Concomitant]
     Route: 065
  6. NPH INSULIN [Concomitant]
     Route: 065
  7. REGULAR INSULIN [Concomitant]
     Route: 065
  8. HALDOL [Concomitant]
     Route: 065
  9. TRAZODONE HCL [Concomitant]
     Route: 065
  10. HYDROCHLOROTHIAZIDE [Concomitant]
     Route: 065
  11. ASPIRIN [Concomitant]
     Route: 065
  12. LISINOPRIL [Concomitant]
     Route: 065
  13. AMLODIPINE [Concomitant]
     Route: 065
  14. BENADRYL [Concomitant]
     Route: 065
  15. METFORMIN [Concomitant]
     Route: 065

REACTIONS (12)
  - ABASIA [None]
  - ABORTION SPONTANEOUS [None]
  - BREAST CYST [None]
  - CARDIAC VALVE DISEASE [None]
  - HYPERTENSION [None]
  - HYPOAESTHESIA [None]
  - MENTAL DISORDER [None]
  - MUSCULOSKELETAL PAIN [None]
  - OFF LABEL USE [None]
  - PAIN IN EXTREMITY [None]
  - PERICARDIAL EFFUSION [None]
  - VAGINAL HAEMORRHAGE [None]
